FAERS Safety Report 21757060 (Version 1)
Quarter: 2022Q4

REPORT INFORMATION
  Report Type: Spontaneous
  Country: PT (occurrence: PT)
  Receive Date: 20221220
  Receipt Date: 20221220
  Transmission Date: 20230113
  Serious: Yes (Death, Other)
  Sender: FDA-Public Use
  Company Number: PT-TAKEDA-2022TUS097458

PATIENT
  Age: 8 Year
  Sex: Female

DRUGS (2)
  1. MARIBAVIR [Suspect]
     Active Substance: MARIBAVIR
     Indication: Allogenic bone marrow transplantation therapy
     Dosage: UNK
     Route: 065
  2. MARIBAVIR [Suspect]
     Active Substance: MARIBAVIR
     Indication: Cytomegalovirus infection

REACTIONS (2)
  - Death [Fatal]
  - Off label use [Unknown]
